FAERS Safety Report 5042975-6 (Version None)
Quarter: 2006Q2

REPORT INFORMATION
  Report Type: 
  Country: None (occurrence: None)
  Receive Date: 20060628
  Receipt Date: 20060619
  Transmission Date: 20061013
  Serious: Yes (Hospitalization)
  Sender: FDA-Public Use
  Company Number: TPA2006A00999

PATIENT
  Age: 77 Year
  Sex: Male
  Weight: 88.4514 kg

DRUGS (8)
  1. ACTOS [Suspect]
     Indication: DIABETES MELLITUS NON-INSULIN-DEPENDENT
     Dosage: 45 MG, 1 IN 1 D, PER ORAL
     Route: 048
     Dates: end: 20060219
  2. PROSCAR [Concomitant]
  3. FLOMAX [Concomitant]
  4. OMEPRAZOLE [Concomitant]
  5. REGLAN [Concomitant]
  6. SYNTHROID [Concomitant]
  7. GLIPIZIDE [Concomitant]
  8. METFORMIN [Concomitant]

REACTIONS (7)
  - CHEST PAIN [None]
  - DIARRHOEA [None]
  - DYSPNOEA [None]
  - FLATULENCE [None]
  - PRURITUS [None]
  - STOMACH DISCOMFORT [None]
  - WEIGHT INCREASED [None]
